FAERS Safety Report 23078327 (Version 1)
Quarter: 2023Q4

REPORT INFORMATION
  Report Type: Spontaneous
  Country: FR (occurrence: FR)
  Receive Date: 20231018
  Receipt Date: 20231018
  Transmission Date: 20240110
  Serious: Yes (Hospitalization)
  Sender: FDA-Public Use
  Company Number: None

PATIENT
  Age: 28 Year
  Sex: Male

DRUGS (8)
  1. RISPERDAL [Suspect]
     Active Substance: RISPERIDONE
     Indication: Behaviour disorder
     Route: 048
     Dates: start: 20230827, end: 20230901
  2. RISPERDAL [Suspect]
     Active Substance: RISPERIDONE
     Route: 048
     Dates: start: 20230901, end: 20230905
  3. RISPERDAL [Suspect]
     Active Substance: RISPERIDONE
     Route: 048
     Dates: start: 20230905
  4. LOXAPINE [Suspect]
     Active Substance: LOXAPINE
     Indication: Behaviour disorder
     Route: 048
     Dates: start: 202309, end: 202309
  5. LOXAPINE [Suspect]
     Active Substance: LOXAPINE
     Route: 048
     Dates: start: 202309, end: 20230912
  6. LOXAPINE [Suspect]
     Active Substance: LOXAPINE
     Route: 048
     Dates: start: 20230827, end: 202309
  7. LOXAPINE [Suspect]
     Active Substance: LOXAPINE
     Route: 048
     Dates: start: 20230820, end: 20230827
  8. LOXAPINE [Suspect]
     Active Substance: LOXAPINE
     Route: 048
     Dates: start: 202309, end: 202309

REACTIONS (2)
  - Hepatic cytolysis [Recovering/Resolving]
  - Transaminases increased [Recovering/Resolving]

NARRATIVE: CASE EVENT DATE: 20230830
